FAERS Safety Report 16491585 (Version 1)
Quarter: 2019Q3

REPORT INFORMATION
  Report Type: Spontaneous
  Country: AU (occurrence: AU)
  Receive Date: 20190627
  Receipt Date: 20190627
  Transmission Date: 20191004
  Serious: Yes (Other)
  Sender: FDA-Public Use
  Company Number: None

PATIENT
  Age: 4 Year
  Sex: Male

DRUGS (1)
  1. SINGULAIR [Suspect]
     Active Substance: MONTELUKAST SODIUM
     Indication: ASTHMA
     Dosage: ?          QUANTITY:1 TABLET(S);?
     Route: 048

REACTIONS (28)
  - Psychiatric symptom [None]
  - Anxiety [None]
  - Fatigue [None]
  - Hostility [None]
  - Palpitations [None]
  - Social avoidant behaviour [None]
  - Withdrawal syndrome [None]
  - Hyperhidrosis [None]
  - Self esteem decreased [None]
  - Selective eating disorder [None]
  - Crying [None]
  - Obsessive-compulsive disorder [None]
  - Agitation [None]
  - Anal fissure [None]
  - Dysgraphia [None]
  - Reaction to food additive [None]
  - Panic attack [None]
  - Arachnophobia [None]
  - Nausea [None]
  - Irritability [None]
  - Speech disorder [None]
  - Reaction to colouring [None]
  - Epistaxis [None]
  - Phobia [None]
  - Affect lability [None]
  - Enuresis [None]
  - Somnolence [None]
  - Anger [None]

NARRATIVE: CASE EVENT DATE: 20130415
